FAERS Safety Report 20700386 (Version 1)
Quarter: 2022Q2

REPORT INFORMATION
  Report Type: Report from Study
  Country: US (occurrence: US)
  Receive Date: 20220412
  Receipt Date: 20220412
  Transmission Date: 20220721
  Serious: Yes (Other)
  Sender: FDA-Public Use
  Company Number: US-DAIICHI SANKYO (CHINA) HOLDINGS CO., LTD.-DSU-2022-112441

PATIENT
  Age: 77 Year
  Sex: Male

DRUGS (1)
  1. ENHERTU [Suspect]
     Active Substance: FAM-TRASTUZUMAB DERUXTECAN-NXKI
     Indication: Oesophageal carcinoma
     Dosage: UNK
     Dates: start: 20200204, end: 20201010

REACTIONS (2)
  - Hepatotoxicity [Unknown]
  - Vomiting [Unknown]
